FAERS Safety Report 7277254-X (Version None)
Quarter: 2011Q1

REPORT INFORMATION
  Report Type: 
  Country: None (occurrence: None)
  Receive Date: 20110202
  Receipt Date: 20110202
  Transmission Date: 20110831
  Serious: Yes (Death)
  Sender: FDA-Public Use
  Company Number: None

PATIENT
  Sex: Male
  Weight: 78.6 kg

DRUGS (2)
  1. SORAFENIB 400 MG [Suspect]
     Indication: PANCREATIC CARCINOMA
     Dosage: 400 MG DAILY ORAL
     Route: 048
     Dates: start: 20101206, end: 20110103
  2. ERLOTINIB 150 MG [Suspect]
     Indication: PANCREATIC CARCINOMA
     Dosage: 150 MG DAILY ORAL
     Route: 048
     Dates: start: 20101206, end: 20110103

REACTIONS (2)
  - NEOPLASM MALIGNANT [None]
  - PANCREATIC CARCINOMA [None]
